FAERS Safety Report 4592077-8 (Version None)
Quarter: 2005Q1

REPORT INFORMATION
  Report Type: 
  Country: None (occurrence: None)
  Receive Date: 20050125
  Receipt Date: 20040825
  Transmission Date: 20050727
  Serious: No
  Sender: FDA-Public Use
  Company Number: USA040876579

PATIENT
  Age: 76 Year
  Sex: Female

DRUGS (6)
  1. FORTEO [Suspect]
     Indication: OSTEOPOROSIS
     Dates: start: 20040730
  2. NEURONTIN [Concomitant]
  3. IBUPROFEN [Concomitant]
  4. CALCIUM GLUCONATE [Concomitant]
  5. VITAMIN D [Concomitant]
  6. VITAMIN C [Concomitant]

REACTIONS (4)
  - ARTHRALGIA [None]
  - ASTHENIA [None]
  - BACK PAIN [None]
  - FATIGUE [None]
